FAERS Safety Report 8450925-5 (Version None)
Quarter: 2012Q2

REPORT INFORMATION
  Report Type: 
  Country: None (occurrence: None)
  Receive Date: 20120620
  Receipt Date: 20120611
  Transmission Date: 20120825
  Serious: Yes (Hospitalization)
  Sender: FDA-Public Use
  Company Number: US-ASTRAZENECA-2012SE39165

PATIENT
  Age: 85 Year
  Sex: Male

DRUGS (5)
  1. HYDRALAZINE HCL [Concomitant]
  2. ALPRAZOLAM [Concomitant]
  3. OMEPRAZOLE [Concomitant]
  4. SEROQUEL XR [Suspect]
     Indication: DEPRESSION
     Route: 048
  5. LISINOPRIL [Concomitant]

REACTIONS (2)
  - DYSPHAGIA [None]
  - HYPERTENSION [None]
